FAERS Safety Report 11340429 (Version 1)
Quarter: 2015Q3

REPORT INFORMATION
  Report Type: Spontaneous
  Country: US (occurrence: US)
  Receive Date: 20150805
  Receipt Date: 20150805
  Transmission Date: 20151125
  Serious: No
  Sender: FDA-Public Use
  Company Number: US-BRISTOL-MYERS SQUIBB COMPANY-BMS-2015-050117

PATIENT
  Sex: Female

DRUGS (1)
  1. SPRYCEL [Suspect]
     Active Substance: DASATINIB
     Indication: PRODUCT USED FOR UNKNOWN INDICATION
     Dosage: 50 MG, QD
     Route: 048
     Dates: start: 20150728

REACTIONS (9)
  - Periorbital oedema [Unknown]
  - Headache [Unknown]
  - Fatigue [Unknown]
  - Bone pain [Unknown]
  - Infection [Unknown]
  - Pain [Unknown]
  - Hypothyroidism [Unknown]
  - Nasopharyngitis [Unknown]
  - Rash [Unknown]
